FAERS Safety Report 5595287-6 (Version None)
Quarter: 2008Q1

REPORT INFORMATION
  Report Type: 
  Country: None (occurrence: None)
  Receive Date: 20080117
  Receipt Date: 20080111
  Transmission Date: 20080703
  Serious: Yes (Hospitalization)
  Sender: FDA-Public Use
  Company Number: DE-MERCK-0801DEU00061

PATIENT
  Age: 39 Year
  Sex: Male
  Weight: 92 kg

DRUGS (4)
  1. SINGULAIR [Suspect]
     Route: 048
  2. NAPROXEN SODIUM [Suspect]
     Indication: BACK PAIN
     Route: 048
     Dates: start: 20070101, end: 20070101
  3. BUDESONIDE [Concomitant]
     Route: 065
  4. AZELASTINE HYDROCHLORIDE [Concomitant]
     Route: 065

REACTIONS (10)
  - ABDOMINAL PAIN UPPER [None]
  - DIZZINESS [None]
  - ERYTHEMA [None]
  - HYPERSENSITIVITY [None]
  - LIP SWELLING [None]
  - PALPITATIONS [None]
  - PRURITUS GENERALISED [None]
  - SWELLING FACE [None]
  - TREMOR [None]
  - VOMITING [None]
